FAERS Safety Report 6162340-8 (Version None)
Quarter: 2009Q2

REPORT INFORMATION
  Report Type: 
  Country: None (occurrence: None)
  Receive Date: 20090421
  Receipt Date: 20090414
  Transmission Date: 20091009
  Serious: No
  Sender: FDA-Public Use
  Company Number: US-B.I. PHARMACEUTICALS,INC./RIDGEFIELD-2009-BP-04694BP

PATIENT
  Sex: Male

DRUGS (6)
  1. FLOMAX [Suspect]
     Indication: BENIGN PROSTATIC HYPERPLASIA
     Dosage: .4MG
     Route: 048
     Dates: start: 19970101
  2. L-DOPA [Concomitant]
     Indication: PARKINSON'S DISEASE
     Dates: start: 20050101
  3. COMPTAN [Concomitant]
     Indication: PARKINSON'S DISEASE
     Dates: start: 20050101
  4. ROPINIROLE [Concomitant]
     Indication: PARKINSON'S DISEASE
     Dates: start: 20050101
  5. ASPIRIN [Concomitant]
     Indication: ANTICOAGULANT THERAPY
  6. DIAZEPAM [Concomitant]
     Indication: ANXIETY

REACTIONS (3)
  - NOCTURIA [None]
  - PROSTATIC DISORDER [None]
  - RASH MACULAR [None]
